FAERS Safety Report 17804725 (Version 22)
Quarter: 2022Q2

REPORT INFORMATION
  Report Type: Spontaneous
  Country: GB (occurrence: GB)
  Receive Date: 20200519
  Receipt Date: 20220506
  Transmission Date: 20220721
  Serious: Yes (Other)
  Sender: FDA-Public Use
  Company Number: GB-MYLANLABS-2020M1028139

PATIENT
  Age: 51 Year
  Sex: Male
  Weight: 69.5 kg

DRUGS (12)
  1. CLOZARIL [Suspect]
     Active Substance: CLOZAPINE
     Indication: Schizophrenia
     Dosage: 100 MILLIGRAM, AM (MANE)
     Route: 048
     Dates: start: 20200226
  2. CLOZARIL [Suspect]
     Active Substance: CLOZAPINE
     Dosage: 200 MILLIGRAM, HS (NOCTE)
     Route: 048
     Dates: start: 20200226
  3. CLOZARIL [Suspect]
     Active Substance: CLOZAPINE
     Dosage: 100 MILLIGRAM, AM (MANE)
     Dates: start: 202202
  4. CLOZARIL [Suspect]
     Active Substance: CLOZAPINE
     Dosage: 200 MILLIGRAM, HS (NOCTE)
     Dates: start: 202202
  5. CLONAZEPAM [Concomitant]
     Active Substance: CLONAZEPAM
     Indication: Agitation
     Dosage: 500 MICROGRAM, QD
     Route: 048
     Dates: start: 2020
  6. CLONAZEPAM [Concomitant]
     Active Substance: CLONAZEPAM
     Dosage: 500 MICROGRAM, BID
     Dates: start: 202202
  7. DULOXETINE [Concomitant]
     Active Substance: DULOXETINE
     Indication: Depressed mood
     Dosage: 60 MILLIGRAM, QD
     Route: 048
  8. DULOXETINE [Concomitant]
     Active Substance: DULOXETINE
     Dosage: 60 MILLIGRAM, QD (OD)
     Dates: start: 202202
  9. FERROUS FUMARATE [Concomitant]
     Active Substance: FERROUS FUMARATE
     Indication: Haemoglobin decreased
     Dosage: UNK, TID (T.D.S.)
  10. FERROUS FUMARATE [Concomitant]
     Active Substance: FERROUS FUMARATE
     Dosage: UNK, TID (TDS)
     Dates: start: 202202
  11. LEVETIRACETAM [Concomitant]
     Active Substance: LEVETIRACETAM
     Indication: Seizure
     Dosage: 500 MILLIGRAM, BID
     Route: 048
     Dates: start: 2017
  12. LEVETIRACETAM [Concomitant]
     Active Substance: LEVETIRACETAM
     Dosage: 500 MILLIGRAM, BID
     Dates: start: 202202

REACTIONS (12)
  - B-cell lymphoma [Not Recovered/Not Resolved]
  - Haemoglobin decreased [Recovering/Resolving]
  - Thrombocytopenia [Recovering/Resolving]
  - Neutrophil count decreased [Recovered/Resolved]
  - Anaemia folate deficiency [Unknown]
  - Differential white blood cell count abnormal [Not Recovered/Not Resolved]
  - White blood cell count increased [Not Recovered/Not Resolved]
  - Neutrophil count increased [Not Recovered/Not Resolved]
  - White blood cell count decreased [Recovering/Resolving]
  - Lymphocyte count decreased [Not Recovered/Not Resolved]
  - Monocyte count decreased [Not Recovered/Not Resolved]
  - Mean platelet volume increased [Not Recovered/Not Resolved]

NARRATIVE: CASE EVENT DATE: 20200302
